FAERS Safety Report 5392164-0 (Version None)
Quarter: 2007Q3

REPORT INFORMATION
  Report Type: 
  Country: None (occurrence: None)
  Receive Date: 20070720
  Receipt Date: 20070710
  Transmission Date: 20080115
  Serious: Yes (Death, Hospitalization)
  Sender: FDA-Public Use
  Company Number: CN-AVENTIS-200716189GDDC

PATIENT
  Age: 79 Year
  Sex: Male

DRUGS (8)
  1. RIFATER [Suspect]
     Indication: PULMONARY TUBERCULOSIS
  2. CEFUROXIME [Suspect]
  3. CEFOPERAZONE SODIUM [Suspect]
  4. SULBACTAM [Suspect]
  5. AMIKACIN [Suspect]
  6. ETHAMBUTOL HYDROCHLORIDE [Suspect]
  7. MYCOSTATIN                         /00036501/ [Concomitant]
     Indication: PROPHYLAXIS
  8. FLUCONAZOLE [Concomitant]
     Indication: FUNGAL INFECTION

REACTIONS (2)
  - ARTHRITIS [None]
  - HAEMORRHAGE [None]
